FAERS Safety Report 18961410 (Version 1)
Quarter: 2021Q1

REPORT INFORMATION
  Report Type: Spontaneous
  Country: JP (occurrence: JP)
  Receive Date: 20210303
  Receipt Date: 20210303
  Transmission Date: 20210420
  Serious: Yes (Hospitalization, Other)
  Sender: FDA-Public Use
  Company Number: JP-TEVA-2021-JP-1885406

PATIENT
  Age: 76 Year
  Sex: Female

DRUGS (4)
  1. L?OHP [Suspect]
     Active Substance: OXALIPLATIN
     Indication: COLON CANCER METASTATIC
     Dosage: MFOLFOX6 REGIMEN; ON DAY 1
     Route: 065
  2. 5?FU [Suspect]
     Active Substance: FLUOROURACIL
     Indication: COLON CANCER METASTATIC
     Dosage: MFOLFOX6 REGIMEN; ON DAY 1
     Route: 040
  3. L?LEUCOVORIN [Suspect]
     Active Substance: LEUCOVORIN
     Indication: COLON CANCER METASTATIC
     Dosage: MFOLFOX6 REGIMEN; ON DAY 1
     Route: 065
  4. 5?FU [Suspect]
     Active Substance: FLUOROURACIL
     Dosage: MFOLFOX6 REGIMEN; OVER 46 HOURS
     Route: 041

REACTIONS (3)
  - Hyperammonaemia [Recovered/Resolved]
  - Altered state of consciousness [Recovered/Resolved]
  - Neuropathy peripheral [Unknown]
